FAERS Safety Report 4577670-0 (Version None)
Quarter: 2005Q1

REPORT INFORMATION
  Report Type: 
  Country: None (occurrence: None)
  Receive Date: 20050210
  Receipt Date: 20050203
  Transmission Date: 20050727
  Serious: Yes (Death, Disabling)
  Sender: FDA-Public Use
  Company Number: US-MERCK-0502USA00535

PATIENT
  Sex: Female

DRUGS (2)
  1. VIOXX [Suspect]
     Indication: ARTHRITIS
     Route: 048
     Dates: start: 20001101, end: 20010201
  2. VIOXX [Suspect]
     Route: 048
     Dates: start: 20010201, end: 20020101

REACTIONS (1)
  - ISCHAEMIC STROKE [None]
